FAERS Safety Report 18594853 (Version 1)
Quarter: 2020Q4

REPORT INFORMATION
  Report Type: Report from Study
  Country: US (occurrence: US)
  Receive Date: 20201209
  Receipt Date: 20201209
  Transmission Date: 20210114
  Serious: Yes (Hospitalization)
  Sender: FDA-Public Use
  Company Number: US-ASTRAZENECA-2020SF60718

PATIENT
  Age: 59 Year
  Sex: Female
  Weight: 59 kg

DRUGS (13)
  1. GOCOVRI [Suspect]
     Active Substance: AMANTADINE
     Indication: PARKINSON^S DISEASE
     Route: 065
     Dates: start: 20200429, end: 20200505
  2. VITAMIN D [Concomitant]
     Active Substance: VITAMIN D NOS
  3. ACETAMINOPHEN. [Concomitant]
     Active Substance: ACETAMINOPHEN
  4. QUETIAPINE. [Suspect]
     Active Substance: QUETIAPINE
     Dosage: 50 MG DAILY IN THE MORNING, AND 75 MG DAILY IN AT NIGHT
     Route: 048
  5. FLUTICASONE. [Concomitant]
     Active Substance: FLUTICASONE
  6. PROPRANOLOL [Suspect]
     Active Substance: PROPRANOLOL HYDROCHLORIDE
     Route: 065
  7. GOCOVRI [Suspect]
     Active Substance: AMANTADINE
     Indication: PARKINSON^S DISEASE
     Route: 065
     Dates: start: 20201030
  8. MELATONIN [Concomitant]
     Active Substance: MELATONIN
  9. CITALOPRAM [Concomitant]
     Active Substance: CITALOPRAM HYDROBROMIDE
  10. LEVOTHYROXINE. [Concomitant]
     Active Substance: LEVOTHYROXINE
  11. GOCOVRI [Suspect]
     Active Substance: AMANTADINE
     Indication: PARKINSON^S DISEASE
     Route: 065
     Dates: start: 20200429, end: 20200505
  12. CARBIDOPA/LEVODOPA [Concomitant]
     Active Substance: CARBIDOPA\LEVODOPA
     Dates: start: 2020, end: 2020
  13. GABAPENTIN. [Concomitant]
     Active Substance: GABAPENTIN

REACTIONS (13)
  - Catatonia [Unknown]
  - Macrocytosis [Unknown]
  - Fatigue [Unknown]
  - Confusional state [Unknown]
  - Drug interaction [Unknown]
  - Mental status changes [Unknown]
  - Paranoia [Unknown]
  - Orthostatic hypotension [Unknown]
  - Impaired driving ability [Unknown]
  - Treatment noncompliance [Unknown]
  - Thrombocytopenia [Unknown]
  - Poor quality sleep [Unknown]
  - Somnolence [Not Recovered/Not Resolved]

NARRATIVE: CASE EVENT DATE: 20200802
